FAERS Safety Report 24555567 (Version 2)
Quarter: 2024Q4

REPORT INFORMATION
  Report Type: Spontaneous
  Country: GB (occurrence: GB)
  Receive Date: 20241028
  Receipt Date: 20241107
  Transmission Date: 20250115
  Serious: Yes (Hospitalization)
  Sender: MYLAN
  Company Number: GB-MYLANLABS-2024M1097433

PATIENT
  Sex: Male

DRUGS (2)
  1. CLOZARIL [Suspect]
     Active Substance: CLOZAPINE
     Indication: Product used for unknown indication
     Dosage: UNK
     Route: 048
     Dates: start: 20160513, end: 20241020
  2. CLOZARIL [Suspect]
     Active Substance: CLOZAPINE
     Dosage: 650 MILLIGRAM, PM (AT NIGHT)
     Route: 048
     Dates: start: 20241022

REACTIONS (2)
  - Small intestinal obstruction [Unknown]
  - Abdominal pain [Unknown]
